FAERS Safety Report 8383236-7 (Version None)
Quarter: 2012Q2

REPORT INFORMATION
  Report Type: 
  Country: None (occurrence: None)
  Receive Date: 20120524
  Receipt Date: 20120514
  Transmission Date: 20120825
  Serious: Yes (Hospitalization, Disabling)
  Sender: FDA-Public Use
  Company Number: AU-VALEANT-2012VX002318

PATIENT
  Age: 51 Year
  Sex: Male

DRUGS (6)
  1. CALCIUM FOLINATE [Suspect]
     Indication: COLORECTAL CANCER STAGE III
     Route: 065
     Dates: end: 20091201
  2. FLUOROURACIL [Concomitant]
     Route: 065
  3. IRINOTECAN HCL [Suspect]
     Indication: COLORECTAL CANCER STAGE III
     Route: 065
     Dates: end: 20091201
  4. FLUOROURACIL [Suspect]
     Indication: COLORECTAL CANCER STAGE III
     Route: 065
     Dates: end: 20091201
  5. ALL OTHER THERAPEUTIC PRODUCTS [Suspect]
     Indication: COLORECTAL CANCER STAGE III
     Route: 065
     Dates: end: 20090901
  6. OXALIPLATIN [Concomitant]
     Route: 065
     Dates: start: 20080501, end: 20081001

REACTIONS (5)
  - SENSORY LOSS [None]
  - MOBILITY DECREASED [None]
  - GUILLAIN-BARRE SYNDROME [None]
  - MUSCULAR WEAKNESS [None]
  - PARAESTHESIA [None]
